FAERS Safety Report 24836073 (Version 1)
Quarter: 2025Q1

REPORT INFORMATION
  Report Type: Spontaneous
  Country: US (occurrence: US)
  Receive Date: 20250113
  Receipt Date: 20250113
  Transmission Date: 20250408
  Serious: No
  Sender: ROCHE
  Company Number: US-ROCHE-10000176911

PATIENT
  Sex: Male

DRUGS (1)
  1. ROZLYTREK [Suspect]
     Active Substance: ENTRECTINIB
     Indication: Thyroid cancer
     Route: 048
     Dates: start: 202403

REACTIONS (4)
  - Off label use [Unknown]
  - Weight increased [Unknown]
  - Pain [Unknown]
  - Decreased appetite [Unknown]
